FAERS Safety Report 8767474 (Version 3)
Quarter: 2012Q4

REPORT INFORMATION
  Report Type: Report from Study
  Country: JP (occurrence: JP)
  Receive Date: 20120904
  Receipt Date: 20121204
  Transmission Date: 20130627
  Serious: Yes (Death, Life-Threatening, Other)
  Sender: FDA-Public Use
  Company Number: JP-CELGENEUS-087-50794-12083342

PATIENT
  Age: 66 Year
  Sex: Female

DRUGS (13)
  1. VIDAZA [Suspect]
     Indication: MDS
     Dosage: 75 milligram/sq. meter
     Route: 058
     Dates: start: 20120314, end: 20120320
  2. VIDAZA [Suspect]
     Dosage: 75 milligram/sq. meter
     Route: 058
     Dates: start: 20120417, end: 20120423
  3. VIDAZA [Suspect]
     Dosage: 37.5 milligram/sq. meter
     Route: 058
     Dates: start: 20120529, end: 20120604
  4. VIDAZA [Suspect]
     Dosage: 37.5 milligram/sq. meter
     Route: 058
     Dates: start: 20120626, end: 20120702
  5. VIDAZA [Suspect]
     Dosage: 37.5 milligram/sq. meter
     Route: 058
     Dates: start: 20120808, end: 20120811
  6. RED BLOOD CELLS [Concomitant]
     Indication: DRUG USE FOR UNKNOWN INDICATION
     Route: 041
  7. ITRIZOLE [Concomitant]
     Indication: DRUG USE FOR UNKNOWN INDICATION
     Route: 065
     Dates: start: 20120321, end: 20120325
  8. NASEA-OD [Concomitant]
     Indication: DRUG USE FOR UNKNOWN INDICATION
     Route: 065
     Dates: start: 20120314, end: 20120320
  9. NASEA-OD [Concomitant]
     Route: 065
     Dates: start: 20120417, end: 20120423
  10. BAKTAR [Concomitant]
     Indication: DRUG USE FOR UNKNOWN INDICATION
     Route: 065
     Dates: start: 20120321, end: 20120811
  11. DIFLUCAN [Concomitant]
     Indication: DRUG USE FOR UNKNOWN INDICATION
     Route: 065
     Dates: start: 20120326, end: 20120811
  12. TAKEPRON [Concomitant]
     Indication: DRUG USE FOR UNKNOWN INDICATION
     Route: 065
     Dates: start: 20120405, end: 20120811
  13. METGLUCO [Concomitant]
     Indication: DRUG USE FOR UNKNOWN INDICATION
     Route: 065
     Dates: end: 20120811

REACTIONS (3)
  - Acidosis [Fatal]
  - Shock [Fatal]
  - White blood cell count increased [Not Recovered/Not Resolved]
